FAERS Safety Report 25763162 (Version 1)
Quarter: 2025Q3

REPORT INFORMATION
  Report Type: Spontaneous
  Country: CN (occurrence: CN)
  Receive Date: 20250905
  Receipt Date: 20250905
  Transmission Date: 20251020
  Serious: Yes (Hospitalization, Other)
  Sender: BAXTER
  Company Number: None

PATIENT
  Age: 14 Year
  Sex: Female
  Weight: 44.2 kg

DRUGS (3)
  1. CYCLOPHOSPHAMIDE [Suspect]
     Active Substance: CYCLOPHOSPHAMIDE
     Indication: Embryonal rhabdomyosarcoma
     Dosage: 1334 MG, QD (1000 MG/M2)
     Route: 041
     Dates: start: 20250803, end: 20250804
  2. PIRARUBICIN HYDROCHLORIDE [Suspect]
     Active Substance: PIRARUBICIN HYDROCHLORIDE
     Indication: Embryonal rhabdomyosarcoma
     Dosage: 66.7 MG, QD (50 MG/M2)
     Route: 041
     Dates: start: 20250803, end: 20250803
  3. VINCRISTINE SULFATE [Suspect]
     Active Substance: VINCRISTINE SULFATE
     Indication: Embryonal rhabdomyosarcoma
     Dosage: 2 MG, QD (1.5 MG/M2)
     Route: 042
     Dates: start: 20250803, end: 20250803

REACTIONS (5)
  - Mouth ulceration [Unknown]
  - Myelosuppression [Recovering/Resolving]
  - Agranulocytosis [Recovering/Resolving]
  - Infection [Unknown]
  - Pyrexia [Recovered/Resolved]

NARRATIVE: CASE EVENT DATE: 20250813
